FAERS Safety Report 6581170-6 (Version None)
Quarter: 2010Q1

REPORT INFORMATION
  Report Type: 
  Country: None (occurrence: None)
  Receive Date: 20100215
  Receipt Date: 20100202
  Transmission Date: 20100710
  Serious: Yes (Other)
  Sender: FDA-Public Use
  Company Number: AU-AMGEN-QUU390220

PATIENT

DRUGS (1)
  1. NEUPOGEN [Suspect]
     Indication: BLOOD STEM CELL HARVEST

REACTIONS (2)
  - OSTEONECROSIS [None]
  - PAIN [None]
